FAERS Safety Report 23630385 (Version 1)
Quarter: 2024Q1

REPORT INFORMATION
  Report Type: Spontaneous
  Country: US (occurrence: US)
  Receive Date: 20240314
  Receipt Date: 20240314
  Transmission Date: 20240410
  Serious: No
  Sender: FDA-Public Use
  Company Number: US-LEO Pharma-368531

PATIENT
  Age: 17 Year
  Sex: Female
  Weight: 42 kg

DRUGS (2)
  1. ADBRY [Suspect]
     Active Substance: TRALOKINUMAB-LDRM
     Indication: Dermatitis atopic
     Dates: start: 2023
  2. RINVOQ [Concomitant]
     Active Substance: UPADACITINIB
     Indication: Product used for unknown indication

REACTIONS (4)
  - Pruritus [Unknown]
  - Dry skin [Unknown]
  - Rash [Unknown]
  - Inappropriate schedule of product administration [Unknown]
